FAERS Safety Report 6490797-1 (Version None)
Quarter: 2009Q4

REPORT INFORMATION
  Report Type: 
  Country: None (occurrence: None)
  Receive Date: 20091211
  Receipt Date: 20091209
  Transmission Date: 20100525
  Serious: Yes (Death)
  Sender: FDA-Public Use
  Company Number: US-JNJFOC-20091203153

PATIENT
  Age: 9 Decade
  Sex: Male

DRUGS (2)
  1. HALDOL [Suspect]
     Indication: DRUG USE FOR UNKNOWN INDICATION
     Route: 030
     Dates: start: 20060101
  2. WARFARIN SODIUM [Concomitant]
     Route: 065

REACTIONS (3)
  - EMBOLISM [None]
  - HAEMORRHAGE [None]
  - PULMONARY THROMBOSIS [None]
